FAERS Safety Report 9440486 (Version 4)
Quarter: 2013Q3

REPORT INFORMATION
  Report Type: Spontaneous
  Country: US (occurrence: US)
  Receive Date: 20130805
  Receipt Date: 20130902
  Transmission Date: 20140515
  Serious: Yes (Hospitalization, Other)
  Sender: FDA-Public Use
  Company Number: US-JNJFOC-20130718571

PATIENT
  Age: 85 Year
  Sex: Female

DRUGS (11)
  1. XARELTO [Suspect]
     Indication: CEREBROVASCULAR ACCIDENT PROPHYLAXIS
     Route: 048
  2. XARELTO [Suspect]
     Indication: CEREBROVASCULAR ACCIDENT PROPHYLAXIS
     Route: 048
     Dates: start: 20120306, end: 20130708
  3. XARELTO [Suspect]
     Indication: ATRIAL FIBRILLATION
     Route: 048
  4. XARELTO [Suspect]
     Indication: ATRIAL FIBRILLATION
     Route: 048
     Dates: start: 20120306, end: 20130708
  5. AMIODARONE [Interacting]
     Indication: VENTRICULAR FIBRILLATION
     Dosage: DOSAGE STARTED FROM 17-MAY
     Route: 048
  6. AMIODARONE [Interacting]
     Indication: ATRIAL FIBRILLATION
     Dosage: DOSAGE STARTED FROM 17-MAY
     Route: 048
  7. FOSAMAX [Concomitant]
     Indication: OSTEOPOROSIS
     Dosage: FROM YEARS
     Route: 065
  8. LIPITOR [Concomitant]
     Indication: ATRIAL FIBRILLATION
     Route: 065
     Dates: start: 20120306
  9. FUROSEMIDE [Concomitant]
     Indication: OEDEMA
     Route: 065
     Dates: start: 20120306
  10. METOPROLOL [Concomitant]
     Indication: ATRIAL FIBRILLATION
     Dosage: DOSAGE STARTED FROM 17-MAY YEAR UNSPECIFIED
     Route: 065
  11. KCL [Concomitant]
     Indication: OEDEMA
     Route: 065
     Dates: start: 20120306

REACTIONS (5)
  - Haematoma [Recovered/Resolved]
  - Cardiac pacemaker insertion [Recovered/Resolved]
  - Red blood cell count decreased [Unknown]
  - Wound secretion [Recovered/Resolved]
  - Drug interaction [Unknown]
